FAERS Safety Report 5737391-5 (Version None)
Quarter: 2008Q2

REPORT INFORMATION
  Report Type: 
  Country: None (occurrence: None)
  Receive Date: 20080514
  Receipt Date: 20080214
  Transmission Date: 20081010
  Serious: Yes (Life-Threatening)
  Sender: FDA-Public Use
  Company Number: US-BRISTOL-MYERS SQUIBB COMPANY-14058929

PATIENT
  Age: 66 Year
  Sex: Female

DRUGS (5)
  1. IXEMPRA KIT [Suspect]
     Indication: BREAST CANCER
     Dosage: 1ST DOSE ON 03-JAN-2008
     Route: 042
     Dates: start: 20080103, end: 20080123
  2. ONDANSETRON [Concomitant]
  3. DEXAMETHASONE [Concomitant]
  4. DIPHENHYDRAMINE HCL [Concomitant]
  5. FAMOTIDINE [Concomitant]

REACTIONS (1)
  - HYPERSENSITIVITY [None]
